FAERS Safety Report 20516426 (Version 1)
Quarter: 2022Q1

REPORT INFORMATION
  Report Type: Report from Study
  Country: RU (occurrence: RU)
  Receive Date: 20220225
  Receipt Date: 20220225
  Transmission Date: 20220424
  Serious: Yes (Hospitalization)
  Sender: FDA-Public Use
  Company Number: RU-RECORDATI RARE DISEASE INC.-2021005569

PATIENT

DRUGS (2)
  1. OSILODROSTAT [Suspect]
     Active Substance: OSILODROSTAT
     Indication: Cushing^s syndrome
     Dosage: 5 MILLIGRAM, BID
     Route: 048
     Dates: start: 20191202, end: 20211213
  2. OSILODROSTAT [Suspect]
     Active Substance: OSILODROSTAT
     Dosage: 5 MILLIGRAM, BID
     Route: 048
     Dates: start: 20211216

REACTIONS (1)
  - Appendicitis [Recovered/Resolved]

NARRATIVE: CASE EVENT DATE: 20211214
